FAERS Safety Report 13836264 (Version 1)
Quarter: 2017Q3

REPORT INFORMATION
  Report Type: Spontaneous
  Country: HR (occurrence: HR)
  Receive Date: 20170804
  Receipt Date: 20170804
  Transmission Date: 20171127
  Serious: Yes (Other)
  Sender: FDA-Public Use
  Company Number: HR-TEVA-791577ACC

PATIENT
  Age: 15 Year
  Sex: Female

DRUGS (2)
  1. HEFEROL [Suspect]
     Active Substance: FERROUS FUMARATE
     Route: 048
     Dates: start: 20170205, end: 20170205
  2. PEPTORAN [Suspect]
     Active Substance: RANITIDINE HYDROCHLORIDE
     Route: 048
     Dates: start: 20170205, end: 20170205

REACTIONS (2)
  - No adverse event [Unknown]
  - Suicide attempt [Unknown]

NARRATIVE: CASE EVENT DATE: 20170205
